FAERS Safety Report 24468219 (Version 5)
Quarter: 2025Q2

REPORT INFORMATION
  Report Type: Report from Study
  Country: US (occurrence: US)
  Receive Date: 20241018
  Receipt Date: 20250530
  Transmission Date: 20250716
  Serious: Yes (Life-Threatening)
  Sender: NOVARTIS
  Company Number: US-002147023-NVSC2024US195781

PATIENT

DRUGS (1)
  1. KESIMPTA [Suspect]
     Active Substance: OFATUMUMAB
     Indication: Relapsing multiple sclerosis
     Route: 058

REACTIONS (13)
  - Influenza like illness [Unknown]
  - Feeling abnormal [Unknown]
  - Nausea [Recovered/Resolved]
  - Pain [Unknown]
  - Headache [Unknown]
  - Fatigue [Unknown]
  - Hypotension [Unknown]
  - Memory impairment [Unknown]
  - Insomnia [Unknown]
  - Hypoaesthesia [Unknown]
  - Anxiety [Unknown]
  - Nervousness [Unknown]
  - Electric shock sensation [Unknown]
